FAERS Safety Report 10186337 (Version 1)
Quarter: 2014Q2

REPORT INFORMATION
  Report Type: Spontaneous
  Country: US (occurrence: US)
  Receive Date: 20140521
  Receipt Date: 20140521
  Transmission Date: 20141212
  Serious: No
  Sender: FDA-Public Use
  Company Number: US-ASTRAZENECA-2014SE22762

PATIENT
  Age: 1334 Day
  Sex: Male
  Weight: 21.8 kg

DRUGS (9)
  1. PULMICORT RESPULES [Suspect]
     Indication: COUGH
     Dosage: 1 MG PER 2 ML Q12H
     Route: 055
     Dates: start: 20131025
  2. PULMICORT RESPULES [Suspect]
     Indication: WHEEZING
     Dosage: 1 MG PER 2 ML Q12H
     Route: 055
     Dates: start: 20131025
  3. PULMICORT RESPULES [Suspect]
     Indication: BRONCHIAL DISORDER
     Dosage: 1 MG PER 2 ML Q12H
     Route: 055
     Dates: start: 20131025
  4. PULMICORT RESPULES [Suspect]
     Indication: COUGH
     Dosage: 1 MG PER 2 ML Q12H
     Route: 055
     Dates: start: 20140310, end: 20140322
  5. PULMICORT RESPULES [Suspect]
     Indication: WHEEZING
     Dosage: 1 MG PER 2 ML Q12H
     Route: 055
     Dates: start: 20140310, end: 20140322
  6. PULMICORT RESPULES [Suspect]
     Indication: BRONCHIAL DISORDER
     Dosage: 1 MG PER 2 ML Q12H
     Route: 055
     Dates: start: 20140310, end: 20140322
  7. ALBUTEROL [Concomitant]
     Indication: COUGH
     Dosage: Q12H
     Route: 055
  8. ALBUTEROL [Concomitant]
     Indication: WHEEZING
     Dosage: Q12H
     Route: 055
  9. ALBUTEROL [Concomitant]
     Indication: BRONCHIAL DISORDER
     Dosage: Q12H
     Route: 055

REACTIONS (8)
  - Pyrexia [Recovered/Resolved]
  - Crepitations [Recovered/Resolved]
  - Wheezing [Recovered/Resolved]
  - Malaise [Recovered/Resolved]
  - Malaise [Recovered/Resolved]
  - Intentional product misuse [Recovered/Resolved]
  - Incorrect product storage [Recovered/Resolved]
  - Expired product administered [Recovered/Resolved]
